FAERS Safety Report 17729380 (Version 1)
Quarter: 2020Q2

REPORT INFORMATION
  Report Type: Spontaneous
  Country: JP (occurrence: JP)
  Receive Date: 20200430
  Receipt Date: 20200430
  Transmission Date: 20200714
  Serious: Yes (Other)
  Sender: FDA-Public Use
  Company Number: JP-MICRO LABS LIMITED-ML2020-01426

PATIENT
  Age: 2 Month
  Sex: Female

DRUGS (7)
  1. VALPROIC ACID. [Suspect]
     Active Substance: VALPROIC ACID
     Indication: INFANTILE SPASMS
  2. ACTH [Suspect]
     Active Substance: CORTICOTROPIN
     Indication: INFANTILE SPASMS
  3. ZONISAMIDE. [Suspect]
     Active Substance: ZONISAMIDE
     Indication: INFANTILE SPASMS
  4. LEVETIRACETAM. [Suspect]
     Active Substance: LEVETIRACETAM
     Indication: INFANTILE SPASMS
  5. VITAMIN B6 [Suspect]
     Active Substance: PYRIDOXINE HYDROCHLORIDE
     Indication: INFANTILE SPASMS
  6. CLONAZEPAM. [Suspect]
     Active Substance: CLONAZEPAM
     Indication: INFANTILE SPASMS
  7. IVIG [Suspect]
     Active Substance: HUMAN IMMUNOGLOBULIN G
     Indication: INFANTILE SPASMS

REACTIONS (1)
  - Drug ineffective [Unknown]
